FAERS Safety Report 13172167 (Version 5)
Quarter: 2017Q4

REPORT INFORMATION
  Report Type: Spontaneous
  Country: JP (occurrence: JP)
  Receive Date: 20170131
  Receipt Date: 20171106
  Transmission Date: 20180320
  Serious: Yes (Hospitalization)
  Sender: FDA-Public Use
  Company Number: JP-DSJP-DSJ-2017-102884

PATIENT

DRUGS (12)
  1. LIXIANA TABLETS [Suspect]
     Active Substance: EDOXABAN TOSYLATE
     Indication: PULMONARY EMBOLISM
     Dosage: 60 MG, QD
     Route: 048
     Dates: start: 20170117, end: 20170125
  2. PRIMPERAN [Concomitant]
     Active Substance: METOCLOPRAMIDE HYDROCHLORIDE
     Indication: NAUSEA
     Dosage: 5 MG, QD
     Route: 048
     Dates: start: 20170112, end: 20170112
  3. CARBOPLATIN. [Concomitant]
     Active Substance: CARBOPLATIN
     Dosage: 500 MG, UNK
     Route: 042
     Dates: start: 20170130, end: 20170130
  4. LIXIANA TABLETS [Suspect]
     Active Substance: EDOXABAN TOSYLATE
     Indication: DEEP VEIN THROMBOSIS
     Dosage: 60MG/DAY
     Route: 048
     Dates: start: 20170104, end: 20170113
  5. MUCOSTA [Concomitant]
     Active Substance: REBAMIPIDE
     Indication: PROPHYLAXIS AGAINST GASTROINTESTINAL ULCER
     Dosage: 100 MG, TID, MORNING,  NOON, EVENING
     Route: 048
     Dates: start: 20170111, end: 20170114
  6. MAGMITT [Concomitant]
     Active Substance: MAGNESIUM OXIDE
     Indication: CONSTIPATION
     Dosage: 500 MG, BID, MORNING, EVENING
     Route: 048
     Dates: start: 20170112, end: 20170119
  7. CARBOPLATIN. [Concomitant]
     Active Substance: CARBOPLATIN
     Dosage: 500 MG, UNK
     Route: 042
     Dates: start: 20161221, end: 20161221
  8. PURSENNID                          /00142207/ [Concomitant]
     Active Substance: SENNA LEAF
     Indication: CONSTIPATION
     Dosage: 24 MG, QD
     Route: 048
     Dates: start: 20170112, end: 20170112
  9. XYLOCAINE [Concomitant]
     Active Substance: LIDOCAINE HYDROCHLORIDE
     Indication: LOCAL ANAESTHESIA
     Dosage: 10 MG, QD
     Route: 058
     Dates: start: 20170105, end: 20170105
  10. IRINOTECAN                         /01280202/ [Concomitant]
     Active Substance: IRINOTECAN
     Dosage: 85 MG, UNK
     Route: 042
     Dates: start: 20161221, end: 20161221
  11. IRINOTECAN                         /01280202/ [Concomitant]
     Active Substance: IRINOTECAN
     Dosage: 85 MG, UNK
     Route: 042
     Dates: start: 20170130, end: 20170130
  12. HYPEN                              /00613801/ [Concomitant]
     Active Substance: ETODOLAC
     Indication: CANCER PAIN
     Dosage: 200 MG, BID, MORNING, EVENING
     Route: 048
     Dates: start: 20161219, end: 20170118

REACTIONS (2)
  - Platelet count decreased [Recovering/Resolving]
  - Platelet count decreased [Recovering/Resolving]

NARRATIVE: CASE EVENT DATE: 20170110
